FAERS Safety Report 5743736-2 (Version None)
Quarter: 2008Q2

REPORT INFORMATION
  Report Type: 
  Country: None (occurrence: None)
  Receive Date: 20080516
  Receipt Date: 20080506
  Transmission Date: 20081010
  Serious: Yes (Other)
  Sender: FDA-Public Use
  Company Number: ADE2008-0194

PATIENT
  Age: 53 Year
  Sex: Male

DRUGS (3)
  1. MIRTAZAPINE [Suspect]
     Dosage: 15-30MG QD-QOD - PO
     Route: 048
     Dates: start: 20070201
  2. DOSULEPIN [Concomitant]
  3. ESCITALOPRAM [Concomitant]

REACTIONS (9)
  - ABNORMAL BEHAVIOUR [None]
  - ABNORMAL DREAMS [None]
  - AGGRESSION [None]
  - ALCOHOL POISONING [None]
  - AMNESIA [None]
  - DEPRESSED LEVEL OF CONSCIOUSNESS [None]
  - DRUG LEVEL INCREASED [None]
  - NIGHTMARE [None]
  - OEDEMA PERIPHERAL [None]
